FAERS Safety Report 6714993-0 (Version None)
Quarter: 2010Q2

REPORT INFORMATION
  Report Type: 
  Country: None (occurrence: None)
  Receive Date: 20100506
  Receipt Date: 20100506
  Transmission Date: 20101027
  Serious: Yes (Other)
  Sender: FDA-Public Use
  Company Number: None

PATIENT
  Age: 4 Year
  Sex: Female
  Weight: 18.5975 kg

DRUGS (2)
  1. CHILDREN'S BENADRYL ALLERGY [Suspect]
     Indication: MULTIPLE ALLERGIES
     Dosage: 5 CC ONCE AT BEDTIME PO
     Route: 048
     Dates: start: 20100201, end: 20100503
  2. CHILDREN'S BENADRYL ALLERGY [Suspect]
     Indication: MULTIPLE ALLERGIES
     Dosage: 5 CC ONCE AT BEDTIME PO
     Route: 048
     Dates: start: 20100201, end: 20100502

REACTIONS (3)
  - NAUSEA [None]
  - PRODUCT QUALITY ISSUE [None]
  - VOMITING [None]
